FAERS Safety Report 6997510 (Version 1)
Quarter: 2020Q3

REPORT INFORMATION
  Report Type: Spontaneous
  Country: DE (occurrence: DE)
  Receive Date: 20090519
  Receipt Date: 20090519
  Transmission Date: 20201104
  Serious: Yes (Other)
  Sender: FDA-Public Use
  Company Number: DE-ROCHE-629053

PATIENT
  Age: 87 Year
  Sex: Female
  Weight: 51 kg

DRUGS (1)
  1. IBANDRONIC ACID. [Suspect]
     Active Substance: IBANDRONIC ACID
     Route: 042
     Dates: start: 20051208, end: 20080410

REACTIONS (1)
  - Teeth brittle [Recovered/Resolved]

NARRATIVE: CASE EVENT DATE: 20080410
